FAERS Safety Report 7965791-1 (Version None)
Quarter: 2011Q4

REPORT INFORMATION
  Report Type: 
  Country: None (occurrence: None)
  Receive Date: 20111208
  Receipt Date: 20111202
  Transmission Date: 20120403
  Serious: Yes (Life-Threatening, Hospitalization)
  Sender: FDA-Public Use
  Company Number: NL-MEDIMMUNE-MEDI-0013916

PATIENT
  Sex: Female
  Weight: 3.88 kg

DRUGS (6)
  1. LACTULOSE [Concomitant]
     Dates: start: 20110101
  2. SYNAGIS [Suspect]
     Indication: PREMATURE BABY
     Route: 030
     Dates: start: 20110929, end: 20111027
  3. SPIRONOLACTONE [Concomitant]
     Dates: start: 20110101
  4. OMEPRAZOLE SODIUM [Concomitant]
     Dates: start: 20110101
  5. HYDROCHLOROTHIAZIDE [Concomitant]
     Dates: start: 20110101
  6. FERRO [Concomitant]
     Dates: start: 20110101

REACTIONS (5)
  - PNEUMONIA [None]
  - RHINOVIRUS INFECTION [None]
  - CARDIAC ARREST [None]
  - PYREXIA [None]
  - UNEVALUABLE EVENT [None]
